FAERS Safety Report 7925086-9 (Version None)
Quarter: 2011Q4

REPORT INFORMATION
  Report Type: 
  Country: None (occurrence: None)
  Receive Date: 20111118
  Receipt Date: 20111116
  Transmission Date: 20120403
  Serious: Yes (Hospitalization)
  Sender: FDA-Public Use
  Company Number: FR-ROCHE-754958

PATIENT
  Sex: Female
  Weight: 54 kg

DRUGS (12)
  1. ARANESP [Concomitant]
  2. AVASTIN [Suspect]
     Indication: COLORECTAL CANCER METASTATIC
     Dosage: DRUG TEMPORARILY INTERRUPTED. DATE OF LAST DOSE PRIOR TO SAE:19 JAN 2011
     Route: 042
     Dates: start: 20101208, end: 20110119
  3. IRINOTECAN HCL [Suspect]
     Indication: COLORECTAL CANCER METASTATIC
     Route: 065
  4. SECTRAL [Concomitant]
  5. XALATAN [Concomitant]
  6. XELODA [Suspect]
     Indication: COLORECTAL CANCER METASTATIC
     Route: 048
  7. FLUOROURACIL [Suspect]
     Indication: COLORECTAL CANCER METASTATIC
     Route: 065
  8. PILOCARPINE [Concomitant]
  9. PAROXETINE HCL [Concomitant]
  10. OXALIPLATIN [Suspect]
     Indication: COLORECTAL CANCER METASTATIC
     Route: 065
  11. IMODIUM [Concomitant]
  12. ALUMINUM HYDROXIDE AND MAGNESIUM TRISILICATE [Concomitant]

REACTIONS (1)
  - ATRIAL TACHYCARDIA [None]
